FAERS Safety Report 17572905 (Version 1)
Quarter: 2020Q1

REPORT INFORMATION
  Report Type: Spontaneous
  Country: US (occurrence: US)
  Receive Date: 20200323
  Receipt Date: 20200323
  Transmission Date: 20200409
  Serious: No
  Sender: FDA-Public Use
  Company Number: US-ELI_LILLY_AND_COMPANY-US202003005259

PATIENT
  Sex: Female

DRUGS (1)
  1. EMGALITY [Suspect]
     Active Substance: GALCANEZUMAB-GNLM
     Indication: MIGRAINE
     Dosage: 240 MG, UNKNOWN
     Route: 065
     Dates: start: 20200302

REACTIONS (7)
  - Abdominal pain [Unknown]
  - Cough [Unknown]
  - Anxiety [Unknown]
  - Disturbance in attention [Unknown]
  - Chest pain [Unknown]
  - Rhinorrhoea [Unknown]
  - Viral infection [Unknown]

NARRATIVE: CASE EVENT DATE: 20200304
